FAERS Safety Report 11031882 (Version 1)
Quarter: 2015Q2

REPORT INFORMATION
  Report Type: Spontaneous
  Country: CN (occurrence: CN)
  Receive Date: 20150415
  Receipt Date: 20150415
  Transmission Date: 20150821
  Serious: Yes (Hospitalization, Other)
  Sender: FDA-Public Use
  Company Number: CN-GLAXOSMITHKLINE-CN2015GSK046706

PATIENT
  Age: 65 Year
  Sex: Male
  Weight: 51 kg

DRUGS (4)
  1. SERETIDE [Suspect]
     Active Substance: FLUTICASONE FUROATE\SALMETEROL XINAFOATE
     Indication: ASTHMA
     Dosage: 1 PUFF(S), QD
     Route: 055
     Dates: start: 200708
  2. WENXIN KELI (TRADITIONAL CHINESE MEDICINE) [Suspect]
     Active Substance: HERBALS
     Indication: DEFECT CONDUCTION INTRAVENTRICULAR
     Dosage: 1 UNK, UNK
     Route: 048
     Dates: start: 2008
  3. AMINOPHYLLINE + BROMHEXINE + CHLORPHENAMINE [Suspect]
     Active Substance: AMINOPHYLLINE\BROMHEXINE\CHLORPHENIRAMINE
     Indication: ASTHMA
     Dosage: 1 UNK, UNK
     Route: 048
     Dates: start: 201408, end: 201503
  4. ALPRAZOLAM. [Suspect]
     Active Substance: ALPRAZOLAM
     Indication: ANXIETY
     Dosage: UNK
     Route: 048
     Dates: start: 2008

REACTIONS (8)
  - Angina pectoris [Recovering/Resolving]
  - Extrasystoles [Recovering/Resolving]
  - Anxiety [Recovering/Resolving]
  - Fatigue [Not Recovered/Not Resolved]
  - Tachycardia paroxysmal [Recovering/Resolving]
  - Weight decreased [Recovered/Resolved]
  - Defect conduction intraventricular [Recovering/Resolving]
  - Arrhythmia [Recovering/Resolving]

NARRATIVE: CASE EVENT DATE: 200708
